FAERS Safety Report 5570262-6 (Version None)
Quarter: 2007Q4

REPORT INFORMATION
  Report Type: 
  Country: None (occurrence: None)
  Receive Date: 20071219
  Receipt Date: 20071204
  Transmission Date: 20080405
  Serious: Yes (Hospitalization, Other)
  Sender: FDA-Public Use
  Company Number: 198021

PATIENT
  Age: 53 Year
  Sex: Female
  Weight: 63.5036 kg

DRUGS (11)
  1. AVONEX [Suspect]
     Indication: MULTIPLE SCLEROSIS
     Dosage: 30 UG; QW; IM
     Route: 030
     Dates: end: 20030801
  2. AVONEX [Suspect]
     Indication: MULTIPLE SCLEROSIS
     Dosage: 30 UG; QW; IM
     Route: 030
     Dates: start: 19990101
  3. AVONEX [Suspect]
     Indication: MULTIPLE SCLEROSIS
     Dosage: 30 UG; QW; IM
     Route: 030
     Dates: start: 20030801
  4. BACLOFEN [Concomitant]
  5. OXYBUTERONE [Concomitant]
  6. KEPPRA [Concomitant]
  7. PROVIGIL [Concomitant]
  8. SEROQUEL [Concomitant]
  9. FLOMAX [Concomitant]
  10. COPAXONE [Concomitant]
  11. COUMADIN [Concomitant]

REACTIONS (8)
  - ATRIAL FIBRILLATION [None]
  - CONVULSION [None]
  - DRUG INTOLERANCE [None]
  - ISCHAEMIC STROKE [None]
  - MULTIPLE SCLEROSIS [None]
  - PANCYTOPENIA [None]
  - SYSTEMIC LUPUS ERYTHEMATOSUS [None]
  - URINARY TRACT INFECTION [None]
